FAERS Safety Report 7419829-0 (Version None)
Quarter: 2011Q2

REPORT INFORMATION
  Report Type: 
  Country: None (occurrence: None)
  Receive Date: 20110418
  Receipt Date: 20110404
  Transmission Date: 20111010
  Serious: Yes (Other)
  Sender: FDA-Public Use
  Company Number: US-JNJFOC-20110403294

PATIENT
  Sex: Male
  Weight: 55.79 kg

DRUGS (3)
  1. LIPITOR [Concomitant]
     Indication: BLOOD CHOLESTEROL INCREASED
     Route: 048
  2. LEVAQUIN [Suspect]
     Indication: DIVERTICULITIS
     Route: 048
  3. LEVAQUIN [Suspect]
     Route: 048

REACTIONS (4)
  - OEDEMA PERIPHERAL [None]
  - TENDON DISORDER [None]
  - TENDON PAIN [None]
  - CONTUSION [None]
